FAERS Safety Report 7368667-6 (Version None)
Quarter: 2011Q1

REPORT INFORMATION
  Report Type: 
  Country: None (occurrence: None)
  Receive Date: 20110323
  Receipt Date: 20110316
  Transmission Date: 20110831
  Serious: Yes (Hospitalization)
  Sender: FDA-Public Use
  Company Number: HU-BRISTOL-MYERS SQUIBB COMPANY-14435010

PATIENT
  Age: 61 Year
  Sex: Male
  Weight: 52 kg

DRUGS (6)
  1. CISPLATIN [Suspect]
     Indication: GASTROOESOPHAGEAL CANCER
     Dosage: 66MG/M2 ON DAY 1 OF CYCLE. MOST RECENT INF ON 31OCT08.
     Route: 042
     Dates: start: 20080722
  2. NADROPARINE [Concomitant]
     Dates: start: 20081020
  3. CETUXIMAB [Suspect]
     Indication: GASTROOESOPHAGEAL CANCER
     Dosage: CETUXIMAB 5MG/ML(IV INF)
     Route: 042
     Dates: start: 20080722, end: 20080916
  4. CAPECITABINE [Suspect]
     Indication: GASTROOESOPHAGEAL CANCER
     Dosage: 1000MG/M2 ON DAY1-15. MOST RECENT INF ON 25NOV08.
     Route: 048
     Dates: start: 20080722
  5. PERINDOPRIL [Concomitant]
     Dates: start: 20070101
  6. ONDANSETRON [Concomitant]
     Dates: start: 20081006

REACTIONS (1)
  - ANAEMIA [None]
